FAERS Safety Report 11193513 (Version 2)
Quarter: 2015Q2

REPORT INFORMATION
  Report Type: Spontaneous
  Country: FR (occurrence: FR)
  Receive Date: 20150616
  Receipt Date: 20150624
  Transmission Date: 20150821
  Serious: Yes (Life-Threatening, Other)
  Sender: FDA-Public Use
  Company Number: FR-PFIZER INC-2015197824

PATIENT
  Weight: 3.3 kg

DRUGS (4)
  1. NETILMICIN [Concomitant]
     Active Substance: NETILMICIN
     Dosage: 20 MG/KG, UNK
     Route: 042
  2. AMPICILLIN [Concomitant]
     Active Substance: AMPICILLIN
     Dosage: 20 MG/KG, UNK
     Route: 042
  3. PHENOBARBITAL. [Concomitant]
     Active Substance: PHENOBARBITAL
     Dosage: 20 MG/KG, UNK
     Route: 042
  4. PHENYTOIN SODIUM. [Suspect]
     Active Substance: PHENYTOIN SODIUM
     Dosage: 30 MG, UNK
     Route: 042

REACTIONS (9)
  - Coma [Unknown]
  - Oedema [Unknown]
  - Bradycardia [Unknown]
  - Hypotension [Unknown]
  - Abdominal distension [Unknown]
  - Drug level increased [Unknown]
  - Toxicity to various agents [Recovered/Resolved]
  - Cardiotoxicity [Recovered/Resolved]
  - Oliguria [Unknown]
